FAERS Safety Report 16187362 (Version 2)
Quarter: 2019Q2

REPORT INFORMATION
  Report Type: Report from Study
  Country: TR (occurrence: TR)
  Receive Date: 20190412
  Receipt Date: 20190529
  Transmission Date: 20190711
  Serious: Yes (Death, Life-Threatening, Hospitalization)
  Sender: FDA-Public Use
  Company Number: TR-AMGEN-TURSL2019054694

PATIENT
  Age: 66 Year
  Sex: Male
  Weight: 68.8 kg

DRUGS (6)
  1. ASPIRIN. [Concomitant]
     Active Substance: ASPIRIN
     Indication: PROPHYLAXIS
     Dosage: 100 MILLIGRAM, QD
     Dates: start: 20130109, end: 20181228
  2. BINOCRIT [Suspect]
     Active Substance: ERYTHROPOIETIN
     Indication: ANAEMIA
     Dosage: 32000 INTERNATIONAL UNIT, 2 TIMES/WK
     Route: 058
     Dates: start: 20190114
  3. AMLOKARD [Concomitant]
     Indication: HYPERTENSION
     Dosage: 10 MILLIGRAM, QD
     Dates: start: 20120608, end: 20190211
  4. DARBEPOETIN ALFA [Suspect]
     Active Substance: DARBEPOETIN ALFA
     Indication: ANAEMIA
     Dosage: 80 MICROGRAM, QWK
     Route: 058
     Dates: start: 20180910, end: 20190102
  5. DEMROSE [Concomitant]
     Indication: ANAEMIA
     Dosage: 100 MILLIGRAM/5ML, 2 TIMES/WK
     Dates: start: 20190112, end: 20190211
  6. COVERSYL [PERINDOPRIL ARGININE] [Concomitant]
     Active Substance: PERINDOPRIL ARGININE
     Indication: HYPERTENSION
     Dosage: 5 MILLIGRAM, 4 TIMES/WK
     Dates: start: 20120926, end: 20190211

REACTIONS (1)
  - Colon cancer [Fatal]

NARRATIVE: CASE EVENT DATE: 20190107
